FAERS Safety Report 14536669 (Version 1)
Quarter: 2018Q1

REPORT INFORMATION
  Report Type: Spontaneous
  Country: US (occurrence: US)
  Receive Date: 20180215
  Receipt Date: 20180215
  Transmission Date: 20180509
  Serious: Yes (Hospitalization)
  Sender: FDA-Public Use
  Company Number: None

PATIENT
  Age: 72 Year
  Sex: Female
  Weight: 59.6 kg

DRUGS (9)
  1. ELIQUIS [Concomitant]
     Active Substance: APIXABAN
  2. TOPROL XL [Concomitant]
     Active Substance: METOPROLOL SUCCINATE
  3. ALLOPURINOL. [Concomitant]
     Active Substance: ALLOPURINOL
  4. DILAUDID [Suspect]
     Active Substance: HYDROMORPHONE HYDROCHLORIDE
     Indication: PAIN
     Dosage: DATES OF USE - 6-26 0044?FREQUENCY - Q4H - PRN
     Route: 048
  5. LASIX [Concomitant]
     Active Substance: FUROSEMIDE
  6. PRAVACHOL [Concomitant]
     Active Substance: PRAVASTATIN SODIUM
  7. TRAMADOL. [Suspect]
     Active Substance: TRAMADOL
     Indication: PAIN
     Dosage: DATES OF USE - 6-25 2311?FREQUENCY - Q4HR PRN
     Route: 048
  8. FLEXERIL [Concomitant]
     Active Substance: CYCLOBENZAPRINE HYDROCHLORIDE
  9. PROTONIX [Concomitant]
     Active Substance: PANTOPRAZOLE SODIUM

REACTIONS (3)
  - Cerebellar haemorrhage [None]
  - Delirium [None]
  - Subdural haemorrhage [None]

NARRATIVE: CASE EVENT DATE: 20170626
